FAERS Safety Report 6166109-X (Version None)
Quarter: 2009Q2

REPORT INFORMATION
  Report Type: 
  Country: None (occurrence: None)
  Receive Date: 20090422
  Receipt Date: 20090422
  Transmission Date: 20091009
  Serious: No
  Sender: FDA-Public Use
  Company Number: None

PATIENT
  Age: 29 Year
  Sex: Female

DRUGS (2)
  1. MEPERIDINE HYDROCHLORIDE INJ [Suspect]
     Dosage: ;50.0 MILLIGRAM(S); 1;
     Dates: start: 20081030, end: 20081030
  2. MIDAZOLAM HCL [Suspect]
     Dosage: INTRAVENOUS;;1;1 TOTAL
     Route: 042
     Dates: start: 20081030, end: 20081030

REACTIONS (4)
  - CONFUSIONAL STATE [None]
  - CONVERSION DISORDER [None]
  - TACHYCARDIA [None]
  - UNRESPONSIVE TO STIMULI [None]
